FAERS Safety Report 8820206 (Version 2)
Quarter: 2013Q1

REPORT INFORMATION
  Report Type: Spontaneous
  Country: US (occurrence: US)
  Receive Date: 20121002
  Receipt Date: 20130115
  Transmission Date: 20140127
  Serious: No
  Sender: FDA-Public Use
  Company Number: US-BIOGENIDEC-2012BI040027

PATIENT
  Age: 35 Year
  Sex: Female

DRUGS (3)
  1. TYSABRI [Suspect]
     Indication: MULTIPLE SCLEROSIS
     Route: 042
     Dates: start: 20120824
  2. PREDNISONE [Concomitant]
     Indication: PREMEDICATION
     Dates: start: 20120824
  3. MEDICINE (NOS) [Concomitant]
     Indication: DEPRESSION

REACTIONS (8)
  - Depression [Not Recovered/Not Resolved]
  - Catheter site pain [Not Recovered/Not Resolved]
  - Mood swings [Not Recovered/Not Resolved]
  - Fall [Recovered/Resolved]
  - Muscle spasms [Not Recovered/Not Resolved]
  - Emotional disorder [Not Recovered/Not Resolved]
  - Headache [Not Recovered/Not Resolved]
  - Bronchitis [Not Recovered/Not Resolved]
